FAERS Safety Report 5478382-1 (Version None)
Quarter: 2007Q4

REPORT INFORMATION
  Report Type: 
  Country: None (occurrence: None)
  Receive Date: 20071005
  Receipt Date: 20070925
  Transmission Date: 20080405
  Serious: Yes (Life-Threatening, Hospitalization)
  Sender: FDA-Public Use
  Company Number: B0488549A

PATIENT
  Age: 78 Year
  Sex: Female

DRUGS (2)
  1. AVANDIA [Suspect]
     Dosage: 1TAB PER DAY
     Route: 048
     Dates: start: 20030101, end: 20070630
  2. GLYBURIDE [Suspect]
     Dosage: 2500MCG PER DAY
     Route: 048
     Dates: start: 20030101, end: 20070630

REACTIONS (3)
  - EPISTAXIS [None]
  - HAEMATOMA [None]
  - THROMBOCYTOPENIA [None]
